FAERS Safety Report 9746075 (Version 3)
Quarter: 2015Q3

REPORT INFORMATION
  Report Type: Spontaneous
  Country: FR (occurrence: FR)
  Receive Date: 20131211
  Receipt Date: 20150722
  Transmission Date: 20151125
  Serious: No
  Sender: FDA-Public Use
  Company Number: FR-GILEAD-2009-0023718

PATIENT
  Sex: Male

DRUGS (5)
  1. TRUVADA [Suspect]
     Active Substance: EMTRICITABINE\TENOFOVIR DISOPROXIL FUMARATE
     Indication: HIV INFECTION
     Dates: start: 20080505
  2. SUSTIVA [Concomitant]
     Active Substance: EFAVIRENZ
     Dates: start: 20090128
  3. RIFAMPICINE [Concomitant]
     Active Substance: RIFAMPIN
     Indication: TUBERCULOSIS
     Dates: end: 20090128
  4. ATRIPLA [Suspect]
     Active Substance: EFAVIRENZ\EMTRICITABINE\TENOFOVIR DISOPROXIL FUMARATE
     Indication: HIV INFECTION
     Dates: start: 20090729
  5. SUSTIVA [Concomitant]
     Active Substance: EFAVIRENZ
     Dates: start: 20080505

REACTIONS (2)
  - Dermatitis allergic [Recovered/Resolved]
  - Toxic skin eruption [Recovered/Resolved]

NARRATIVE: CASE EVENT DATE: 200805
